FAERS Safety Report 23674042 (Version 1)
Quarter: 2024Q1

REPORT INFORMATION
  Report Type: Spontaneous
  Country: AU (occurrence: AU)
  Receive Date: 20240326
  Receipt Date: 20240326
  Transmission Date: 20240409
  Serious: Yes (Hospitalization, Other)
  Sender: FDA-Public Use
  Company Number: AU-CAMURUS AB-AU-CAM-24-00294

PATIENT
  Sex: Male

DRUGS (1)
  1. BUPRENORPHINE [Suspect]
     Active Substance: BUPRENORPHINE
     Indication: Pain
     Dosage: 96 MILLIGRAM, ABDOMEN
     Route: 065

REACTIONS (4)
  - Toxicity to various agents [Recovered/Resolved]
  - Respiratory depression [Recovered/Resolved]
  - Off label use [Unknown]
  - Product administration error [Unknown]

NARRATIVE: CASE EVENT DATE: 20240311
